FAERS Safety Report 20841020 (Version 1)
Quarter: 2022Q2

REPORT INFORMATION
  Report Type: Spontaneous
  Country: US (occurrence: US)
  Receive Date: 20220517
  Receipt Date: 20220517
  Transmission Date: 20220721
  Serious: No
  Sender: FDA-Public Use
  Company Number: US-PFIZER INC-2020374990

PATIENT
  Age: 63 Year
  Sex: Female
  Weight: 91.61 kg

DRUGS (3)
  1. PRISTIQ EXTENDED-RELEASE [Suspect]
     Active Substance: DESVENLAFAXINE SUCCINATE
     Indication: Pain
     Dosage: 50 MG, 1X/DAY
     Route: 048
  2. NUCYNTA ER [Concomitant]
     Active Substance: TAPENTADOL HYDROCHLORIDE
     Dosage: 50 MG
  3. TIZANIDINE [Concomitant]
     Active Substance: TIZANIDINE
     Dosage: 2 MG

REACTIONS (3)
  - Weight decreased [Unknown]
  - Off label use [Unknown]
  - Drug effective for unapproved indication [Unknown]
